FAERS Safety Report 17239402 (Version 2)
Quarter: 2020Q1

REPORT INFORMATION
  Report Type: Report from Study
  Country: US (occurrence: US)
  Receive Date: 20200106
  Receipt Date: 20200109
  Transmission Date: 20200409
  Serious: Yes (Death)
  Sender: FDA-Public Use
  Company Number: US-EXELIXIS-CABO-19025280

PATIENT
  Age: 74 Year
  Sex: Male

DRUGS (1)
  1. CABOMETYX [Suspect]
     Active Substance: CABOZANTINIB S-MALATE
     Indication: LUNG ADENOCARCINOMA STAGE IV
     Dosage: 60 MG, QD (AROUND 7 AM WITHOUT FOOD)
     Dates: start: 20191022

REACTIONS (14)
  - Death [Fatal]
  - Cough [Unknown]
  - Hallucination [Unknown]
  - Off label use [Unknown]
  - Dyspnoea [Unknown]
  - Fatigue [Unknown]
  - Decubitus ulcer [Not Recovered/Not Resolved]
  - Rectal ulcer [Unknown]
  - Stomatitis [Unknown]
  - Back pain [Not Recovered/Not Resolved]
  - Weight decreased [Unknown]
  - Abdominal pain [Not Recovered/Not Resolved]
  - Constipation [Unknown]
  - Chest pain [Unknown]

NARRATIVE: CASE EVENT DATE: 20191221
